FAERS Safety Report 15249501 (Version 1)
Quarter: 2018Q3

REPORT INFORMATION
  Report Type: Spontaneous
  Country: US (occurrence: US)
  Receive Date: 20180807
  Receipt Date: 20180807
  Transmission Date: 20181010
  Serious: No
  Sender: FDA-Public Use
  Company Number: US-009507513-1808USA002614

PATIENT
  Age: 3 Month
  Sex: Female

DRUGS (1)
  1. MOMETASONE FUROATE. [Suspect]
     Active Substance: MOMETASONE FUROATE
     Indication: SEBORRHOEIC DERMATITIS
     Dosage: UNK
     Route: 061

REACTIONS (3)
  - Hypothalamic pituitary adrenal axis suppression [Unknown]
  - Drug administered to patient of inappropriate age [Unknown]
  - Vomiting [Unknown]
